FAERS Safety Report 8343751-9 (Version None)
Quarter: 2012Q2

REPORT INFORMATION
  Report Type: 
  Country: None (occurrence: None)
  Receive Date: 20120508
  Receipt Date: 20120508
  Transmission Date: 20120825
  Serious: Yes (Other)
  Sender: FDA-Public Use
  Company Number: None

PATIENT
  Age: 82 Year
  Sex: Male
  Weight: 97.522 kg

DRUGS (2)
  1. DEXILANT [Suspect]
     Indication: GASTROOESOPHAGEAL REFLUX DISEASE
     Dosage: 60.0 MG
     Dates: start: 20120115, end: 20120326
  2. PROTONIX [Concomitant]
     Indication: GASTROOESOPHAGEAL REFLUX DISEASE
     Dosage: 40MG
     Dates: start: 20120327, end: 20120508

REACTIONS (3)
  - PUBIC PAIN [None]
  - PROSTATOMEGALY [None]
  - CONDITION AGGRAVATED [None]
